FAERS Safety Report 7217314-2 (Version None)
Quarter: 2011Q1

REPORT INFORMATION
  Report Type: 
  Country: None (occurrence: None)
  Receive Date: 20110110
  Receipt Date: 20101231
  Transmission Date: 20110831
  Serious: Yes (Death)
  Sender: FDA-Public Use
  Company Number: US-PFIZER INC-2011002310

PATIENT
  Age: 85 Year
  Sex: Male

DRUGS (2)
  1. NIFEDIPINE [Suspect]
  2. ACETAMINOPHEN [Suspect]

REACTIONS (1)
  - DEATH [None]
